FAERS Safety Report 6549329-1 (Version None)
Quarter: 2010Q1

REPORT INFORMATION
  Report Type: 
  Country: None (occurrence: None)
  Receive Date: 20100125
  Receipt Date: 20100112
  Transmission Date: 20100710
  Serious: Yes (Hospitalization, Other)
  Sender: FDA-Public Use
  Company Number: PHHY2010US01868

PATIENT
  Sex: Female

DRUGS (6)
  1. DIOVAN [Suspect]
     Indication: HYPERTENSION
     Route: 048
  2. MULTAQ [Concomitant]
     Indication: ATRIAL FIBRILLATION
     Dosage: 400 MG, TWICE DAILY
     Route: 048
     Dates: start: 20091015
  3. PROPAFENONE HCL [Concomitant]
     Dosage: 400 MG, TWICE DAILY
     Route: 048
     Dates: start: 20080101, end: 20091014
  4. COLCHICINE [Concomitant]
     Route: 065
  5. WARFARIN SODIUM [Concomitant]
     Route: 065
  6. SIMVASTATIN [Concomitant]

REACTIONS (5)
  - ATRIAL FIBRILLATION [None]
  - HEART RATE ABNORMAL [None]
  - HYPOTENSION [None]
  - LOSS OF CONSCIOUSNESS [None]
  - SLEEP APNOEA SYNDROME [None]
